FAERS Safety Report 20831468 (Version 1)
Quarter: 2022Q2

REPORT INFORMATION
  Report Type: Report from Study
  Country: US (occurrence: US)
  Receive Date: 20220516
  Receipt Date: 20220516
  Transmission Date: 20220721
  Serious: Yes (Hospitalization, Congenital Anomaly, Other)
  Sender: FDA-Public Use
  Company Number: US-ABBVIE-22K-163-4265344-00

PATIENT
  Age: 18 Year
  Sex: Female
  Weight: 68.100 kg

DRUGS (6)
  1. HUMIRA [Suspect]
     Active Substance: ADALIMUMAB
     Indication: Crohn^s disease
     Dosage: CITRATE FREE?PREVIOUS DOSE 40MG 2/28
     Route: 058
     Dates: start: 201912, end: 202201
  2. HUMIRA [Suspect]
     Active Substance: ADALIMUMAB
     Route: 058
     Dates: start: 202201, end: 202203
  3. HUMIRA [Suspect]
     Active Substance: ADALIMUMAB
     Indication: Crohn^s disease
     Route: 058
     Dates: start: 202203
  4. PFIZER-BIONTECH COVID-19 VACCINE [Concomitant]
     Active Substance: TOZINAMERAN
     Indication: COVID-19 immunisation
     Dosage: 1ST DOSE
     Route: 030
     Dates: start: 20210605, end: 20210605
  5. PFIZER-BIONTECH COVID-19 VACCINE [Concomitant]
     Active Substance: TOZINAMERAN
     Dosage: 2ND DOSE
     Route: 030
     Dates: start: 20210626, end: 20210626
  6. PFIZER-BIONTECH COVID-19 VACCINE [Concomitant]
     Active Substance: TOZINAMERAN
     Dosage: 3RD DOSE
     Route: 030
     Dates: start: 20211010, end: 20211010

REACTIONS (7)
  - Crohn^s disease [Recovering/Resolving]
  - Cholelithiasis [Recovering/Resolving]
  - Nephrolithiasis [Recovered/Resolved]
  - Urethral stenosis [Unknown]
  - Ehlers-Danlos syndrome [Not Recovered/Not Resolved]
  - Abnormal faeces [Recovering/Resolving]
  - Erythema nodosum [Recovering/Resolving]

NARRATIVE: CASE EVENT DATE: 20210801
